FAERS Safety Report 11128764 (Version 1)
Quarter: 2015Q2

REPORT INFORMATION
  Report Type: Spontaneous
  Country: IT (occurrence: IT)
  Receive Date: 20150521
  Receipt Date: 20150521
  Transmission Date: 20150821
  Serious: Yes (Other)
  Sender: FDA-Public Use
  Company Number: IT-TAKEDA-2015TEU004032

PATIENT
  Age: 56 Year
  Sex: Female

DRUGS (3)
  1. LANSOX [Suspect]
     Active Substance: LANSOPRAZOLE
     Indication: GASTROOESOPHAGEAL REFLUX PROPHYLAXIS
     Dosage: UNK
     Route: 065
  2. PERIDON /00498201/ [Suspect]
     Active Substance: DOMPERIDONE
     Indication: GASTROOESOPHAGEAL REFLUX PROPHYLAXIS
     Dosage: UNK
     Route: 065
  3. NOREMIFA [Suspect]
     Active Substance: DIMETHICONE\MAGNESIUM ALGINATE\SILICON DIOXIDE\SODIUM ALGINATE
     Indication: GASTROOESOPHAGEAL REFLUX PROPHYLAXIS
     Dosage: UNK
     Route: 065

REACTIONS (1)
  - Drug ineffective [Unknown]

NARRATIVE: CASE EVENT DATE: 2013
